FAERS Safety Report 13279799 (Version 1)
Quarter: 2017Q1

REPORT INFORMATION
  Report Type: Spontaneous
  Country: US (occurrence: US)
  Receive Date: 20170228
  Receipt Date: 20170228
  Transmission Date: 20170428
  Serious: No
  Sender: FDA-Public Use
  Company Number: None

PATIENT
  Age: 51 Year
  Sex: Male
  Weight: 105.1 kg

DRUGS (1)
  1. HEPARIN 30000 UNITS/30ML [Suspect]
     Active Substance: HEPARIN SODIUM
     Indication: ANTICOAGULANT THERAPY
     Dates: start: 20170209

REACTIONS (2)
  - Heparin resistance [None]
  - Product quality issue [None]

NARRATIVE: CASE EVENT DATE: 20170209
